FAERS Safety Report 11686521 (Version 14)
Quarter: 2017Q2

REPORT INFORMATION
  Report Type: Report from Study
  Country: CA (occurrence: CA)
  Receive Date: 20151030
  Receipt Date: 20170508
  Transmission Date: 20170829
  Serious: Yes (Hospitalization, Other)
  Sender: FDA-Public Use
  Company Number: CA-PFIZER INC-2015366706

PATIENT
  Age: 46 Year
  Sex: Female

DRUGS (27)
  1. SALOFALK /00000301/ [Concomitant]
     Active Substance: MESALAMINE
     Dosage: UNK, QD
     Dates: start: 201501, end: 201503
  2. VEDOLIZUMAB [Suspect]
     Active Substance: VEDOLIZUMAB
     Indication: COLITIS ULCERATIVE
     Dosage: 300 MG, UNK
     Route: 042
     Dates: start: 20150821
  3. APO-CEPHALEX [Suspect]
     Active Substance: CEPHALEXIN
     Indication: ABSCESS
     Dosage: UNK MG, UNK
     Route: 048
  4. VENOFER [Suspect]
     Active Substance: IRON SUCROSE
     Indication: ABSCESS
     Dosage: UNK, CYCLIC (EVERY 2 WEEKS)
     Route: 042
     Dates: start: 201409
  5. FRAGMIN [Suspect]
     Active Substance: DALTEPARIN SODIUM
     Indication: DEEP VEIN THROMBOSIS
     Dosage: 15000 IU, DAILY
     Route: 058
  6. VANCOMYCIN HCL [Suspect]
     Active Substance: VANCOMYCIN HYDROCHLORIDE
     Indication: ABSCESS
     Dosage: UNK
     Route: 042
     Dates: start: 20150914, end: 20150916
  7. SALOFALK /00000301/ [Concomitant]
     Active Substance: MESALAMINE
     Dosage: 8 DF, QD
  8. IMOVAN [Concomitant]
     Active Substance: ZOPICLONE
     Dosage: 7.5 MG, UNK
  9. FRAGMIN [Suspect]
     Active Substance: DALTEPARIN SODIUM
     Indication: PHLEBITIS
  10. PLAQUENIL /00072602/ [Concomitant]
     Active Substance: HYDROXYCHLOROQUINE DIPHOSPHATE
     Dosage: 400 MG, UNK
     Route: 048
  11. DILAUDID [Concomitant]
     Active Substance: HYDROMORPHONE HYDROCHLORIDE
     Dosage: 1 MG, UNK
  12. ANCEF [Suspect]
     Active Substance: CEFAZOLIN SODIUM
     Indication: ABSCESS
     Dosage: 2 G, 1X/DAY
     Route: 042
     Dates: start: 20150916
  13. VENOFER [Suspect]
     Active Substance: IRON SUCROSE
     Dosage: UNK
     Route: 042
     Dates: start: 20160113
  14. PLAQUENIL /00072602/ [Concomitant]
     Active Substance: HYDROXYCHLOROQUINE DIPHOSPHATE
     Dosage: 200 MG, ONCE IN 3 WEEKS
     Route: 048
  15. VITAMIN D [Concomitant]
     Active Substance: CHOLECALCIFEROL
     Dosage: UNK
  16. ERGOCALCIFEROL. [Concomitant]
     Active Substance: ERGOCALCIFEROL
  17. PANTOLOC [Suspect]
     Active Substance: PANTOPRAZOLE SODIUM
     Dosage: 40 MG, 1X/DAY
     Route: 065
     Dates: start: 20150101
  18. VEDOLIZUMAB [Suspect]
     Active Substance: VEDOLIZUMAB
     Dosage: 300 MG, Q4WEEKS
     Route: 042
     Dates: start: 20150904
  19. VEDOLIZUMAB [Suspect]
     Active Substance: VEDOLIZUMAB
     Dosage: 300 MG, UNK
     Route: 042
  20. PREDNISONE. [Suspect]
     Active Substance: PREDNISONE
     Indication: SYSTEMIC LUPUS ERYTHEMATOSUS
     Dosage: 4 MG, QD
     Route: 048
  21. PLAQUENIL /00072602/ [Concomitant]
     Active Substance: HYDROXYCHLOROQUINE DIPHOSPHATE
     Dosage: 200 MG, BID
     Route: 048
  22. STEMETIL /00013301/ [Concomitant]
     Active Substance: PROCHLORPERAZINE
     Indication: PREMEDICATION
     Dosage: 10 MG, UNK
  23. METHOTREXATE. [Concomitant]
     Active Substance: METHOTREXATE
     Indication: SYSTEMIC LUPUS ERYTHEMATOSUS
     Dosage: 10 MG, WEEKLY
     Route: 058
     Dates: start: 20150908
  24. CEFTRIAXONE SODIUM. [Suspect]
     Active Substance: CEFTRIAXONE SODIUM
     Indication: ABSCESS
     Dosage: 2 G, 1X/DAY
     Route: 042
     Dates: start: 20150913, end: 20150916
  25. KETOLEX [Suspect]
     Active Substance: KETOROLAC TROMETHAMINE
     Indication: ABSCESS
     Dosage: 500 MG, 4X/DAY
     Route: 048
     Dates: start: 20150918, end: 20151002
  26. CARDIZEM [Concomitant]
     Active Substance: DILTIAZEM HYDROCHLORIDE
     Dosage: 180 MG, QD
  27. ACTONEL [Concomitant]
     Active Substance: RISEDRONATE SODIUM
     Dosage: UNK

REACTIONS (16)
  - Abscess limb [Unknown]
  - Colitis ulcerative [Not Recovered/Not Resolved]
  - Haematoma [Unknown]
  - Breast abscess [Unknown]
  - Tooth abscess [Recovered/Resolved]
  - Wound [Unknown]
  - Diarrhoea haemorrhagic [Recovered/Resolved]
  - Secretion discharge [Unknown]
  - Erythema [Unknown]
  - Burning sensation [Recovered/Resolved]
  - Abscess [Unknown]
  - Infusion site erythema [Unknown]
  - Infusion site pain [Unknown]
  - Erythema nodosum [Unknown]
  - Infusion site warmth [Unknown]
  - Infusion site oedema [Unknown]

NARRATIVE: CASE EVENT DATE: 2015
